FAERS Safety Report 15200204 (Version 2)
Quarter: 2018Q3

REPORT INFORMATION
  Report Type: Spontaneous
  Country: US (occurrence: US)
  Receive Date: 20180726
  Receipt Date: 20180803
  Transmission Date: 20181010
  Serious: Yes (Other)
  Sender: FDA-Public Use
  Company Number: US-BEH-2018093076

PATIENT
  Age: 49 Year
  Sex: Female
  Weight: 47.62 kg

DRUGS (40)
  1. LIDOCAINE. [Concomitant]
     Active Substance: LIDOCAINE
  2. ANASPAZ [Concomitant]
     Active Substance: HYOSCYAMINE SULFATE
  3. LYSINE [Concomitant]
     Active Substance: LYSINE
  4. TIROSINT [Concomitant]
     Active Substance: LEVOTHYROXINE SODIUM
  5. THYROID [Concomitant]
     Active Substance: LEVOTHYROXINE\LIOTHYRONINE
  6. DURAGESIC [Concomitant]
     Active Substance: FENTANYL
  7. AMINO ACID [Concomitant]
     Active Substance: AMINO ACIDS
  8. HIZENTRA [Suspect]
     Active Substance: HUMAN IMMUNOGLOBULIN G
     Indication: IMMUNODEFICIENCY
     Dosage: UNK
     Route: 058
  9. HIZENTRA [Suspect]
     Active Substance: HUMAN IMMUNOGLOBULIN G
     Dosage: UNK
     Route: 058
  10. HIZENTRA [Suspect]
     Active Substance: HUMAN IMMUNOGLOBULIN G
     Dosage: 9 G, QW
     Route: 058
     Dates: start: 20180520
  11. LIDOCAINE/PRILOCAINE [Concomitant]
     Active Substance: LIDOCAINE\PRILOCAINE
  12. PROAIR HFA [Concomitant]
     Active Substance: ALBUTEROL SULFATE
  13. SUMATRIPTAN SUCCINATE. [Concomitant]
     Active Substance: SUMATRIPTAN SUCCINATE
  14. LEVALBUTEROL. [Concomitant]
     Active Substance: LEVALBUTEROL
  15. MULTIVITAMIN                       /00097801/ [Concomitant]
     Active Substance: VITAMINS
  16. CLOTRIMAZOLE. [Concomitant]
     Active Substance: CLOTRIMAZOLE
  17. RECLAST [Concomitant]
     Active Substance: ZOLEDRONIC ACID
  18. LORAZEPAM. [Concomitant]
     Active Substance: LORAZEPAM
  19. NYSTATIN. [Concomitant]
     Active Substance: NYSTATIN
  20. PREVACID [Concomitant]
     Active Substance: LANSOPRAZOLE
  21. ACETAMINOPHEN. [Concomitant]
     Active Substance: ACETAMINOPHEN
  22. EPINEPHRINE. [Concomitant]
     Active Substance: EPINEPHRINE
  23. ASTEPRO [Concomitant]
     Active Substance: AZELASTINE HYDROCHLORIDE
  24. CREON [Concomitant]
     Active Substance: PANCRELIPASE AMYLASE\PANCRELIPASE LIPASE\PANCRELIPASE PROTEASE
  25. ANECREAM [Concomitant]
     Active Substance: LIDOCAINE
  26. TRAZODONE [Concomitant]
     Active Substance: TRAZODONE HYDROCHLORIDE
  27. CLONAZEPAM. [Concomitant]
     Active Substance: CLONAZEPAM
  28. DIPHENHYDRAMINE. [Concomitant]
     Active Substance: DIPHENHYDRAMINE
  29. ZOFRAN [Concomitant]
     Active Substance: ONDANSETRON HYDROCHLORIDE
  30. ZOMIG [Concomitant]
     Active Substance: ZOLMITRIPTAN
  31. AMBIEN [Concomitant]
     Active Substance: ZOLPIDEM TARTRATE
  32. PROBIOTIC                          /06395501/ [Concomitant]
     Active Substance: BIFIDOBACTERIUM ANIMALIS LACTIS
  33. ABBOKINASE [Concomitant]
     Active Substance: UROKINASE
  34. IPRATROPIUM BROMIDE. [Concomitant]
     Active Substance: IPRATROPIUM BROMIDE
  35. DILTIAZEM. [Concomitant]
     Active Substance: DILTIAZEM
  36. PROMETHAZINE [Concomitant]
     Active Substance: PROMETHAZINE\PROMETHAZINE HYDROCHLORIDE
  37. FAMCICLOVIR. [Concomitant]
     Active Substance: FAMCICLOVIR
  38. CYMBALTA [Concomitant]
     Active Substance: DULOXETINE HYDROCHLORIDE
  39. HYOSCYAMINE SULFATE. [Concomitant]
     Active Substance: HYOSCYAMINE SULFATE
  40. XOPENEX [Concomitant]
     Active Substance: LEVALBUTEROL HYDROCHLORIDE

REACTIONS (4)
  - Gastrointestinal bacterial overgrowth [Unknown]
  - Lymph gland infection [Unknown]
  - Mastitis [Unknown]
  - Cystitis escherichia [Unknown]

NARRATIVE: CASE EVENT DATE: 2018
